FAERS Safety Report 4750648-X (Version None)
Quarter: 2005Q3

REPORT INFORMATION
  Report Type: 
  Country: None (occurrence: None)
  Receive Date: 20050823
  Receipt Date: 20050817
  Transmission Date: 20060218
  Serious: Yes (Other)
  Sender: FDA-Public Use
  Company Number: PHNR2005AU01263

PATIENT
  Age: 52 Year
  Sex: Female
  Weight: 50 kg

DRUGS (3)
  1. CLARITHROMYCIN [Suspect]
     Indication: BRONCHITIS
     Dosage: 750 MG, DAILY
     Route: 048
     Dates: start: 20041123, end: 20041130
  2. BENADRYL [Suspect]
     Indication: COUGH
     Dosage: 1.0 DOSE UNSPECIFIED,AS NECESSARY
     Route: 048
     Dates: start: 20041123, end: 20041130
  3. FAMVIR [Suspect]
     Indication: HERPES ZOSTER
     Dosage: 500 MG, DAILY
     Route: 048
     Dates: start: 20041111, end: 20041117

REACTIONS (3)
  - ALANINE AMINOTRANSFERASE INCREASED [None]
  - BLOOD BILIRUBIN INCREASED [None]
  - HEPATITIS [None]
